FAERS Safety Report 11043096 (Version 5)
Quarter: 2018Q2

REPORT INFORMATION
  Report Type: Report from Study
  Country: DE (occurrence: DE)
  Receive Date: 20150417
  Receipt Date: 20180425
  Transmission Date: 20180711
  Serious: Yes (Life-Threatening, Hospitalization, Other)
  Sender: FDA-Public Use
  Company Number: DE-ROCHE-1564505

PATIENT
  Age: 63 Year
  Sex: Female
  Weight: 57.4 kg

DRUGS (5)
  1. BEVACIZUMAB. [Suspect]
     Active Substance: BEVACIZUMAB
     Indication: COLORECTAL CANCER METASTATIC
     Dosage: THE PATIENT HAD LAST INFUSION PRIOR THE EVENT OF SEIZURE WAS ON 10/JUN/2014
     Route: 042
     Dates: start: 20140423, end: 20150706
  2. IRINOTECAN [Concomitant]
     Active Substance: IRINOTECAN
     Indication: COLORECTAL CANCER METASTATIC
     Dosage: WEEKS
     Route: 042
     Dates: start: 20150430
  3. 5-FLUOROURACIL [Concomitant]
     Active Substance: FLUOROURACIL
     Indication: COLORECTAL CANCER METASTATIC
     Route: 042
     Dates: start: 20140331
  4. OXALIPLATIN. [Concomitant]
     Active Substance: OXALIPLATIN
     Indication: COLORECTAL CANCER METASTATIC
     Route: 042
     Dates: start: 20140331
  5. FOLINIC ACID [Concomitant]
     Active Substance: LEUCOVORIN
     Indication: COLORECTAL CANCER METASTATIC
     Route: 042
     Dates: start: 20140331

REACTIONS (7)
  - Leukopenia [Recovered/Resolved]
  - Hypertension [Unknown]
  - Seizure [Recovered/Resolved]
  - Gastrointestinal haemorrhage [Unknown]
  - Anaemia [Not Recovered/Not Resolved]
  - Diarrhoea [Recovered/Resolved]
  - Diarrhoea [Unknown]

NARRATIVE: CASE EVENT DATE: 20140613
